FAERS Safety Report 6542952-X (Version None)
Quarter: 2010Q1

REPORT INFORMATION
  Report Type: 
  Country: None (occurrence: None)
  Receive Date: 20100120
  Receipt Date: 20100105
  Transmission Date: 20100710
  Serious: Yes (Other)
  Sender: FDA-Public Use
  Company Number: IN-TYCO HEALTHCARE/MALLINCKRODT-T201000023

PATIENT
  Age: 10 Year
  Sex: Female
  Weight: 24 kg

DRUGS (7)
  1. TRAMADOL [Suspect]
     Indication: ANALGESIC THERAPY
     Dosage: 50 MG, SINGLE
     Route: 042
  2. ISONIAZID [Interacting]
     Indication: BONE TUBERCULOSIS
     Dosage: 150 MG, LAST 2 MONTHS
  3. ONDANSETRON [Concomitant]
     Indication: PREMEDICATION
     Dosage: 2 MG, SINGLE
     Route: 042
  4. MIDAZOLAM HCL [Concomitant]
     Indication: PREMEDICATION
     Dosage: 0.5 MG, SINGLE
     Route: 042
  5. RIFAMPICIN [Concomitant]
     Indication: BONE TUBERCULOSIS
     Dosage: 300 MG, LAST TWO MONTHS
  6. ETHAMBUTOL HYDROCHLORIDE [Concomitant]
     Indication: BONE TUBERCULOSIS
     Dosage: 400 MG, LAST TWO MONTHS
  7. PYRAZINAMIDE [Concomitant]
     Indication: BONE TUBERCULOSIS
     Dosage: 600 MG, LAST TWO MONTHS

REACTIONS (2)
  - CONVULSION [None]
  - DRUG INTERACTION [None]
